FAERS Safety Report 6518529-9 (Version None)
Quarter: 2009Q4

REPORT INFORMATION
  Report Type: 
  Country: None (occurrence: None)
  Receive Date: 20091226
  Receipt Date: 20091221
  Transmission Date: 20100525
  Serious: Yes (Death, Life-Threatening, Other)
  Sender: FDA-Public Use
  Company Number: DE-JNJFOC-20091101902

PATIENT
  Age: 82 Year
  Sex: Male

DRUGS (12)
  1. HALDOL [Suspect]
     Indication: DRUG USE FOR UNKNOWN INDICATION
     Route: 048
     Dates: start: 20071130, end: 20080102
  2. HALDOL [Suspect]
     Route: 048
     Dates: start: 20071130, end: 20080102
  3. HALDOL [Suspect]
     Route: 048
     Dates: start: 20071130, end: 20080102
  4. LEPONEX [Suspect]
     Indication: DRUG USE FOR UNKNOWN INDICATION
     Route: 048
  5. LEPONEX [Suspect]
     Route: 048
  6. QUILONUM RETARD [Suspect]
     Indication: DRUG USE FOR UNKNOWN INDICATION
     Route: 048
     Dates: start: 20071212, end: 20080102
  7. QUILONUM RETARD [Suspect]
     Route: 048
     Dates: start: 20071212, end: 20080102
  8. UBRETID [Suspect]
     Indication: DRUG USE FOR UNKNOWN INDICATION
     Route: 048
     Dates: start: 20071219, end: 20080102
  9. SAB SIMPLEX [Concomitant]
     Route: 065
     Dates: start: 20071220, end: 20080102
  10. ZOLPIDEM [Concomitant]
     Route: 048
     Dates: start: 20071130, end: 20080102
  11. MIRTAZAPINE [Concomitant]
     Route: 048
     Dates: start: 20071203, end: 20080102
  12. TAVOR [Concomitant]
     Route: 048
     Dates: start: 20071220, end: 20071231

REACTIONS (3)
  - CARDIOPULMONARY FAILURE [None]
  - FATIGUE [None]
  - PNEUMONIA [None]
